FAERS Safety Report 8222412-0 (Version None)
Quarter: 2012Q1

REPORT INFORMATION
  Report Type: 
  Country: None (occurrence: None)
  Receive Date: 20120320
  Receipt Date: 20120312
  Transmission Date: 20120608
  Serious: Yes (Hospitalization)
  Sender: FDA-Public Use
  Company Number: US-BAYER-2011-080140

PATIENT
  Age: 18 Year
  Sex: Female
  Weight: 84 kg

DRUGS (11)
  1. PHENERGAN [Concomitant]
     Dosage: 25 MG, UNK
     Route: 054
     Dates: start: 20080619
  2. YASMIN [Suspect]
     Indication: CONTRACEPTION
     Dosage: UNK
     Dates: start: 20070201, end: 20080201
  3. IBUPROFEN [Concomitant]
     Indication: ANALGESIC THERAPY
     Route: 048
  4. DROSPIRENONE AND ETHINYL ESTRADIOL [Suspect]
     Indication: CONTRACEPTION
     Dosage: UNK
     Dates: start: 20090501, end: 20090801
  5. YAZ [Suspect]
     Indication: CONTRACEPTION
     Dosage: UNK
     Dates: start: 20080201, end: 20090801
  6. YAZ [Suspect]
     Indication: MENSTRUATION IRREGULAR
  7. YASMIN [Suspect]
     Indication: MENSTRUATION IRREGULAR
  8. DROSPIRENONE AND ETHINYL ESTRADIOL [Suspect]
     Indication: MENSTRUATION IRREGULAR
  9. PREVACID [Concomitant]
     Dosage: 30 MG, UNK
     Route: 048
     Dates: start: 20080617
  10. PRILOSEC [Concomitant]
     Dosage: UNK
     Route: 048
     Dates: start: 20080616, end: 20080619
  11. VITAMIN TAB [Concomitant]
     Dosage: UNK
     Route: 048
     Dates: start: 20080616

REACTIONS (5)
  - ANXIETY [None]
  - BILE DUCT STONE [None]
  - PAIN [None]
  - CHOLELITHIASIS [None]
  - EMOTIONAL DISTRESS [None]
